FAERS Safety Report 7223546-X (Version None)
Quarter: 2011Q1

REPORT INFORMATION
  Report Type: 
  Country: None (occurrence: None)
  Receive Date: 20110112
  Receipt Date: 20100820
  Transmission Date: 20110831
  Serious: No
  Sender: FDA-Public Use
  Company Number: US-ALLERGAN-1010837US

PATIENT
  Age: 79 Year
  Sex: Female

DRUGS (1)
  1. RESTASIS [Suspect]
     Indication: DRY EYE
     Dosage: 1 GTT, QAM
     Route: 047

REACTIONS (2)
  - EYE IRRITATION [None]
  - SUPERFICIAL INJURY OF EYE [None]
